FAERS Safety Report 5733654-8 (Version None)
Quarter: 2008Q2

REPORT INFORMATION
  Report Type: 
  Country: None (occurrence: None)
  Receive Date: 20080509
  Receipt Date: 20080222
  Transmission Date: 20081010
  Serious: No
  Sender: FDA-Public Use
  Company Number: A0708114A

PATIENT
  Age: 2 Year
  Sex: Male

DRUGS (1)
  1. ALTABAX [Suspect]
     Dosage: 1APP SINGLE DOSE
     Route: 061
     Dates: start: 20080101, end: 20080101

REACTIONS (4)
  - APPLICATION SITE DISCOMFORT [None]
  - APPLICATION SITE ERYTHEMA [None]
  - APPLICATION SITE IRRITATION [None]
  - APPLICATION SITE PAIN [None]
